FAERS Safety Report 12623553 (Version 2)
Quarter: 2016Q3

REPORT INFORMATION
  Report Type: Report from Study
  Country: CN (occurrence: CN)
  Receive Date: 20160804
  Receipt Date: 20160914
  Transmission Date: 20161109
  Serious: Yes (Other)
  Sender: FDA-Public Use
  Company Number: PHHY2016CN104455

PATIENT
  Age: 33 Year
  Sex: Male

DRUGS (128)
  1. SODIUM CHLORIDE. [Concomitant]
     Active Substance: SODIUM CHLORIDE
     Dosage: 1000 ML, SOS
     Route: 042
     Dates: start: 20160313, end: 20160313
  2. CHYMOTRIPSIN [Concomitant]
     Indication: PRODUCTIVE COUGH
     Dosage: 4000 IU, TID
     Route: 055
     Dates: start: 20160313, end: 20160319
  3. DOXOFYLLINE [Concomitant]
     Active Substance: DOXOFYLLINE
     Indication: PRODUCTIVE COUGH
     Dosage: 200 MG, QD
     Route: 042
     Dates: start: 20160311, end: 20160318
  4. FUROSEMIDE. [Concomitant]
     Active Substance: FUROSEMIDE
     Dosage: 80 MG, SOS
     Route: 042
     Dates: start: 20160318, end: 20160318
  5. FUROSEMIDE. [Concomitant]
     Active Substance: FUROSEMIDE
     Dosage: 120 MG, SOS
     Route: 042
     Dates: start: 20160323, end: 20160323
  6. POTASSIUM CHLORIDE. [Concomitant]
     Active Substance: POTASSIUM CHLORIDE
     Dosage: 1.5 G, SOS
     Route: 042
     Dates: start: 20160319, end: 20160319
  7. METHYLPREDNISOLONE. [Suspect]
     Active Substance: METHYLPREDNISOLONE
     Dosage: 400 MG, QD
     Route: 065
     Dates: start: 20160312, end: 20160313
  8. ELECTROLYTES WITH CARBOHYDRATES [Concomitant]
     Indication: PRODUCT USED FOR UNKNOWN INDICATION
     Dosage: 500 ML, SOS
     Route: 042
     Dates: start: 20160311, end: 20160311
  9. CEFOTIAM HYDROCHLORIDE [Concomitant]
     Active Substance: CEFOTIAM HYDROCHLORIDE
     Indication: INFLAMMATION
     Dosage: 2 G, SOS
     Route: 042
     Dates: start: 20160312, end: 20160312
  10. DILTIAZEM HYDROCHLORIDE. [Concomitant]
     Active Substance: DILTIAZEM HYDROCHLORIDE
     Dosage: 30 MG, BID
     Route: 048
     Dates: start: 20160321, end: 20160402
  11. DOPAMINE HYDROCHLORIDE. [Concomitant]
     Active Substance: DOPAMINE HYDROCHLORIDE
     Dosage: 10 MG, QD
     Route: 042
     Dates: start: 20160325, end: 20160325
  12. DOXOFYLLINE [Concomitant]
     Active Substance: DOXOFYLLINE
     Indication: COUGH
     Dosage: 200 MG, SOS
     Route: 042
     Dates: start: 20160311, end: 20160311
  13. FUROSEMIDE. [Concomitant]
     Active Substance: FUROSEMIDE
     Indication: POLYURIA
     Dosage: 40 MG, SOS
     Route: 042
     Dates: start: 20160311, end: 20160311
  14. FUROSEMIDE. [Concomitant]
     Active Substance: FUROSEMIDE
     Dosage: 160 MG, SOS
     Route: 042
     Dates: start: 20160313, end: 20160313
  15. FUROSEMIDE. [Concomitant]
     Active Substance: FUROSEMIDE
     Dosage: 120 MG, SOS
     Route: 042
     Dates: start: 20160317, end: 20160317
  16. METHYLPREDNISOLONE. [Concomitant]
     Active Substance: METHYLPREDNISOLONE
     Dosage: 40 MG, SOS
     Route: 042
     Dates: start: 20160325, end: 20160325
  17. POTASSIUM CHLORIDE. [Concomitant]
     Active Substance: POTASSIUM CHLORIDE
     Dosage: 1 G, SOS
     Route: 042
     Dates: start: 20160316, end: 20160316
  18. GLUTATHIONE [Concomitant]
     Active Substance: GLUTATHIONE
     Dosage: 1200 MG, SOS
     Route: 042
     Dates: start: 20160311, end: 20160311
  19. SMECTA [Concomitant]
     Active Substance: MONTMORILLONITE
     Indication: DIARRHOEA
     Dosage: 3 G, SOS
     Route: 048
     Dates: start: 20160314, end: 20160314
  20. LACTATED RINGERS [Concomitant]
     Active Substance: CALCIUM CHLORIDE\POTASSIUM CHLORIDE\SODIUM CHLORIDE\SODIUM LACTATE
     Dosage: 500 ML, SOS
     Route: 042
     Dates: start: 20160315, end: 20160315
  21. TALCID [Concomitant]
     Active Substance: HYDROTALCITE
     Indication: GASTRITIS PROPHYLAXIS
     Dosage: 500 MG, TID
     Route: 048
     Dates: start: 20160314, end: 20160402
  22. MICARDIS [Concomitant]
     Active Substance: TELMISARTAN
     Indication: HYPERTENSION
     Dosage: 80 MG, SOS
     Route: 048
     Dates: start: 20160313, end: 20160313
  23. VASOREL [Concomitant]
     Indication: CARDIOVASCULAR EVENT PROPHYLAXIS
     Dosage: 20 MG, TID
     Route: 048
     Dates: start: 20160315, end: 20160402
  24. GLUCOSE + SODIUM CHLORIDE [Concomitant]
     Indication: PRODUCT USED FOR UNKNOWN INDICATION
     Dosage: 500 ML, SOS
     Route: 042
     Dates: start: 20160314, end: 20160314
  25. GLUCOSE + SODIUM CHLORIDE [Concomitant]
     Dosage: 500 ML, SOS
     Route: 042
     Dates: start: 20160317, end: 20160317
  26. METHYLPREDNISOLONE. [Suspect]
     Active Substance: METHYLPREDNISOLONE
     Indication: PRODUCT USED FOR UNKNOWN INDICATION
     Dosage: 500 MG, QD
     Route: 065
     Dates: start: 20160311, end: 20160311
  27. SODIUM CHLORIDE. [Concomitant]
     Active Substance: SODIUM CHLORIDE
     Dosage: 50 ML, SOS
     Route: 042
     Dates: start: 20160311, end: 20160411
  28. SODIUM CHLORIDE. [Concomitant]
     Active Substance: SODIUM CHLORIDE
     Dosage: 100 MG, SOS
     Route: 042
     Dates: start: 20160401, end: 20160401
  29. ELECTROLYTES WITH CARBOHYDRATES [Concomitant]
     Dosage: 500 ML, SOS
     Route: 042
     Dates: start: 20160312, end: 20160312
  30. CEFDINIR. [Concomitant]
     Active Substance: CEFDINIR
     Indication: INFLAMMATION
     Dosage: 200 MG, SOS
     Route: 048
     Dates: start: 20160322, end: 20160322
  31. CEFOTIAM HYDROCHLORIDE [Concomitant]
     Active Substance: CEFOTIAM HYDROCHLORIDE
     Dosage: 2 G, BID
     Route: 042
     Dates: start: 20160313, end: 20160314
  32. DOPAMINE HYDROCHLORIDE. [Concomitant]
     Active Substance: DOPAMINE HYDROCHLORIDE
     Indication: HYPERTENSION
     Dosage: 180 MG, SOS
     Route: 042
     Dates: start: 20160312, end: 20160312
  33. ESOMEPRAZOLE MAGNESIUM. [Concomitant]
     Active Substance: ESOMEPRAZOLE MAGNESIUM
     Indication: GASTRITIS PROPHYLAXIS
     Dosage: 40 MG, SOS
     Route: 042
     Dates: start: 20160313, end: 20160313
  34. HUMAN ALBUMIN [Concomitant]
     Active Substance: ALBUMIN HUMAN
     Dosage: 10 G, BID
     Route: 042
     Dates: start: 20160311, end: 20160314
  35. INSULIN [Concomitant]
     Active Substance: INSULIN NOS
     Dosage: 10 IU, SOS
     Route: 042
     Dates: start: 20160315, end: 20160315
  36. LIVARACINE [Concomitant]
     Dosage: 2500 IU, SOS
     Route: 023
     Dates: start: 20160425, end: 20160425
  37. MAGNESIUM ISOGLYCYRRHIZINATE [Concomitant]
     Active Substance: MAGNESIUM ISOGLYCYRRHIZINATE
     Indication: PROPHYLAXIS
     Dosage: 20 ML, QD
     Route: 042
     Dates: start: 20160318, end: 20160318
  38. OMEPRAZOLE SODIUM [Concomitant]
     Active Substance: OMEPRAZOLE SODIUM
     Dosage: 40 MG, SOS
     Route: 042
     Dates: start: 20160312, end: 20160312
  39. PHENOBARBITAL SODIUM. [Concomitant]
     Active Substance: PHENOBARBITAL SODIUM
     Indication: SEDATIVE THERAPY
     Dosage: 100 MG, SOS
     Route: 030
     Dates: start: 20160311, end: 20160311
  40. PHOSPHOCREATINE SODIUM [Concomitant]
     Dosage: 1 G, SOS
     Route: 042
     Dates: start: 20160312, end: 20160312
  41. POTASSIUM CHLORIDE. [Concomitant]
     Active Substance: POTASSIUM CHLORIDE
     Indication: MINERAL SUPPLEMENTATION
     Dosage: 1 G, SOS
     Route: 042
     Dates: start: 20160314, end: 20160314
  42. POTASSIUM CHLORIDE. [Concomitant]
     Active Substance: POTASSIUM CHLORIDE
     Dosage: 1 G, SOS
     Route: 042
     Dates: start: 20160317, end: 20160317
  43. GLUTATHIONE [Concomitant]
     Active Substance: GLUTATHIONE
     Dosage: 1200 MG, SOS
     Route: 042
     Dates: start: 20160312, end: 20160312
  44. GLUCOSE + SODIUM CHLORIDE [Concomitant]
     Dosage: 1000 ML, SOS
     Route: 042
     Dates: start: 20160318, end: 20160318
  45. IPRATROPIUM BROMIDE. [Concomitant]
     Active Substance: IPRATROPIUM BROMIDE
     Indication: PRODUCTIVE COUGH
  46. MYFORTIC [Suspect]
     Active Substance: MYCOPHENOLATE SODIUM
     Indication: RENAL TRANSPLANT
     Dosage: 1440 MG, QD
     Route: 048
     Dates: start: 20160312, end: 20160312
  47. SODIUM CHLORIDE. [Concomitant]
     Active Substance: SODIUM CHLORIDE
     Dosage: 250 ML, SOS
     Route: 042
     Dates: start: 20160315, end: 20160315
  48. FUROSEMIDE. [Concomitant]
     Active Substance: FUROSEMIDE
     Dosage: 80 MG, SOS
     Route: 042
     Dates: start: 20160321, end: 20160321
  49. HUMAN ALBUMIN [Concomitant]
     Active Substance: ALBUMIN HUMAN
     Dosage: 10 G, BID
     Route: 042
     Dates: start: 20160314, end: 20160317
  50. MENTHOL. [Concomitant]
     Active Substance: MENTHOL
     Indication: PRODUCTIVE COUGH
  51. OMEPRAZOLE SODIUM [Concomitant]
     Active Substance: OMEPRAZOLE SODIUM
     Dosage: 40 MG, SOS
     Route: 042
     Dates: start: 20160311, end: 20160311
  52. GLUCOSE + SODIUM CHLORIDE [Concomitant]
     Dosage: 500 ML, SOS
     Route: 042
     Dates: start: 20160315, end: 20160315
  53. GLUCOSE + SODIUM CHLORIDE [Concomitant]
     Dosage: 500 ML, SOS
     Route: 042
     Dates: start: 20160316, end: 20160316
  54. BASILIXIMAB [Suspect]
     Active Substance: BASILIXIMAB
     Dosage: 20 MG, QD
     Route: 065
     Dates: start: 20160315, end: 20160315
  55. METHYLPREDNISOLONE. [Suspect]
     Active Substance: METHYLPREDNISOLONE
     Dosage: 300 MG, QD
     Route: 065
     Dates: start: 20160314, end: 20160314
  56. BUDESONIDE. [Concomitant]
     Active Substance: BUDESONIDE
     Indication: LUNG DISORDER
  57. CEFDINIR. [Concomitant]
     Active Substance: CEFDINIR
     Dosage: 200 MG, TID
     Route: 048
     Dates: start: 20160322, end: 20160402
  58. DOXOFYLLINE [Concomitant]
     Active Substance: DOXOFYLLINE
     Indication: WHEEZING
     Dosage: 200 MG, SOS
     Route: 042
     Dates: start: 20160312, end: 20160312
  59. FUROSEMIDE. [Concomitant]
     Active Substance: FUROSEMIDE
     Dosage: 120 MG, SOS
     Route: 042
     Dates: start: 20160312, end: 20160312
  60. FUROSEMIDE. [Concomitant]
     Active Substance: FUROSEMIDE
     Dosage: 160 MG, SOS
     Route: 042
     Dates: start: 20160319, end: 20160319
  61. INSULIN [Concomitant]
     Active Substance: INSULIN NOS
     Dosage: 10 IU, SOS
     Route: 042
     Dates: start: 20160316, end: 20160316
  62. LEVOCARNITINE. [Concomitant]
     Active Substance: LEVOCARNITINE
     Dosage: 1 DF (1 VIAL), QD
     Route: 042
     Dates: start: 20160311, end: 20160318
  63. METHYLPREDNISOLONE. [Concomitant]
     Active Substance: METHYLPREDNISOLONE
     Dosage: 40 MG, SOS
     Route: 042
     Dates: start: 20160401, end: 20160401
  64. MUCOSOLVAN [Concomitant]
     Active Substance: AMBROXOL HYDROCHLORIDE
     Indication: LUNG DISORDER
     Dosage: 15 MG, TID
     Route: 055
     Dates: start: 20160311, end: 20160313
  65. POTASSIUM CHLORIDE. [Concomitant]
     Active Substance: POTASSIUM CHLORIDE
     Dosage: 1 G, SOS
     Route: 042
     Dates: start: 20160315, end: 20160315
  66. POTASSIUM CHLORIDE. [Concomitant]
     Active Substance: POTASSIUM CHLORIDE
     Dosage: 1 G, SOS
     Route: 042
     Dates: start: 20160318, end: 20160318
  67. GLUCOSE + SODIUM CHLORIDE [Concomitant]
     Dosage: 500 ML, SOS
     Route: 042
     Dates: start: 20160319, end: 20160319
  68. ADALAT [Concomitant]
     Active Substance: NIFEDIPINE
     Dosage: 30 MG, SOS
     Route: 048
     Dates: start: 20160315, end: 20160315
  69. ALOSTIN//ALPROSTADIL [Concomitant]
     Dosage: 10 UG, QD
     Route: 042
     Dates: start: 20160311, end: 20160317
  70. MYCOPHENOLATE MOFETIL. [Suspect]
     Active Substance: MYCOPHENOLATE MOFETIL
     Indication: PRODUCT USED FOR UNKNOWN INDICATION
     Dosage: 1000 MG, QD
     Route: 065
     Dates: start: 20160311, end: 20160311
  71. PREDNISONE. [Suspect]
     Active Substance: PREDNISONE
     Indication: PRODUCT USED FOR UNKNOWN INDICATION
     Dosage: 20 MG, QD
     Route: 065
     Dates: start: 20160314
  72. SODIUM CHLORIDE. [Concomitant]
     Active Substance: SODIUM CHLORIDE
     Dosage: 100 ML, SOS
     Route: 042
     Dates: start: 20160325, end: 20160325
  73. BUDESONIDE. [Concomitant]
     Active Substance: BUDESONIDE
     Indication: PRODUCTIVE COUGH
     Dosage: 1 DF (VIAL), TID
     Route: 055
     Dates: start: 20160311, end: 20160313
  74. CEFOTIAM HYDROCHLORIDE [Concomitant]
     Active Substance: CEFOTIAM HYDROCHLORIDE
     Dosage: 2000 MG, BID
     Route: 042
     Dates: start: 20160314, end: 20160318
  75. FUROSEMIDE. [Concomitant]
     Active Substance: FUROSEMIDE
     Dosage: 160 MG, SOS
     Route: 042
     Dates: start: 20160320, end: 20160320
  76. HEPARIN SODIUM. [Concomitant]
     Active Substance: HEPARIN SODIUM
     Indication: PRODUCT USED FOR UNKNOWN INDICATION
     Dosage: 6250 IU, QD
     Route: 042
     Dates: start: 20160311, end: 20160401
  77. HUMAN ALBUMIN [Concomitant]
     Active Substance: ALBUMIN HUMAN
     Dosage: 20 G, BID
     Route: 042
     Dates: start: 20160314, end: 20160314
  78. INSULIN [Concomitant]
     Active Substance: INSULIN NOS
     Indication: BLOOD GLUCOSE ABNORMAL
     Dosage: 10 IU, SOS
     Route: 042
     Dates: start: 20160314, end: 20160314
  79. LEVOCARNITINE. [Concomitant]
     Active Substance: LEVOCARNITINE
     Indication: CARDIOVASCULAR EVENT PROPHYLAXIS
     Dosage: 1 DF (1 VIAL), SOS
     Route: 042
     Dates: start: 20160311, end: 20160311
  80. MENTHOL. [Concomitant]
     Active Substance: MENTHOL
     Indication: LUNG DISORDER
     Dosage: 5 ML, TID
     Route: 055
     Dates: start: 20160313, end: 20160319
  81. MUCOSOLVAN [Concomitant]
     Active Substance: AMBROXOL HYDROCHLORIDE
     Indication: PRODUCTIVE COUGH
     Dosage: 15 ML, TID
     Route: 055
     Dates: start: 20160313, end: 20160319
  82. PHOSPHOCREATINE SODIUM [Concomitant]
     Dosage: 1 G, SOS
     Route: 042
     Dates: start: 20160311, end: 20160311
  83. LACTATED RINGERS [Concomitant]
     Active Substance: CALCIUM CHLORIDE\POTASSIUM CHLORIDE\SODIUM CHLORIDE\SODIUM LACTATE
     Indication: PRODUCT USED FOR UNKNOWN INDICATION
     Dosage: 1000 ML, SOS
     Route: 042
     Dates: start: 20160311, end: 20160311
  84. LACTATED RINGERS [Concomitant]
     Active Substance: CALCIUM CHLORIDE\POTASSIUM CHLORIDE\SODIUM CHLORIDE\SODIUM LACTATE
     Dosage: 1000 ML, SOS
     Route: 042
     Dates: start: 20160313, end: 20160313
  85. LACTATED RINGERS [Concomitant]
     Active Substance: CALCIUM CHLORIDE\POTASSIUM CHLORIDE\SODIUM CHLORIDE\SODIUM LACTATE
     Dosage: 500 ML, SOS
     Route: 042
     Dates: start: 20160316, end: 20160316
  86. IPRATROPIUM BROMIDE. [Concomitant]
     Active Substance: IPRATROPIUM BROMIDE
     Indication: LUNG DISORDER
     Dosage: 1 DF (1VIAL), TID
     Route: 055
     Dates: start: 20160311, end: 20160313
  87. ADALAT [Concomitant]
     Active Substance: NIFEDIPINE
     Indication: HYPERTENSION
     Dosage: 60 MG, SOS
     Route: 042
     Dates: start: 20160311, end: 20160311
  88. ADALAT [Concomitant]
     Active Substance: NIFEDIPINE
     Dosage: 30 MG, QD
     Route: 048
     Dates: start: 20160315, end: 20160320
  89. CRAVIT [Concomitant]
     Active Substance: LEVOFLOXACIN
     Indication: INFLAMMATION
     Dosage: 100 ML, UNK
     Route: 042
     Dates: start: 20160311, end: 20160311
  90. SODIUM CHLORIDE. [Concomitant]
     Active Substance: SODIUM CHLORIDE
     Indication: INFUSION
     Dosage: 1000 ML, SOS
     Route: 042
     Dates: start: 20160311, end: 20160311
  91. SODIUM CHLORIDE. [Concomitant]
     Active Substance: SODIUM CHLORIDE
     Dosage: 50 ML, BID
     Route: 042
     Dates: start: 20160311, end: 20160314
  92. CEPHAZOLINE SODIUM [Concomitant]
     Active Substance: CEFAZOLIN SODIUM
     Indication: SKIN TEST
     Dosage: 500 MG, SOS
     Route: 061
     Dates: start: 20160312, end: 20160312
  93. CETIRIZINE HYDROCHLORIDE. [Concomitant]
     Active Substance: CETIRIZINE HYDROCHLORIDE
     Dosage: 10 MG, SOS
     Route: 048
     Dates: start: 20160401, end: 20160401
  94. DILTIAZEM HYDROCHLORIDE. [Concomitant]
     Active Substance: DILTIAZEM HYDROCHLORIDE
     Indication: HYPERTENSION
     Dosage: 60 MG, SOS
     Route: 042
     Dates: start: 20160313, end: 20160313
  95. DOPAMINE HYDROCHLORIDE. [Concomitant]
     Active Substance: DOPAMINE HYDROCHLORIDE
     Dosage: 10 MG, SOS
     Route: 042
     Dates: start: 20160320, end: 20160320
  96. DOPAMINE HYDROCHLORIDE. [Concomitant]
     Active Substance: DOPAMINE HYDROCHLORIDE
     Dosage: 10 MG, SOS
     Route: 042
     Dates: start: 20160323, end: 20160323
  97. FUROSEMIDE. [Concomitant]
     Active Substance: FUROSEMIDE
     Dosage: 80 MG, SOS
     Route: 042
     Dates: start: 20160315, end: 20160315
  98. LEVOCARNITINE. [Concomitant]
     Active Substance: LEVOCARNITINE
     Dosage: 1 DF (1 VIAL), SOS
     Route: 042
     Dates: start: 20160312, end: 20160312
  99. LIVARACINE [Concomitant]
     Dosage: 2500 IU, SOS
     Route: 042
     Dates: start: 20160418, end: 20160418
  100. PHOSPHOCREATINE SODIUM [Concomitant]
     Indication: CARDIOVASCULAR EVENT PROPHYLAXIS
     Dosage: 1 G, QD
     Route: 042
     Dates: start: 20160311, end: 20160318
  101. GLUTATHIONE [Concomitant]
     Active Substance: GLUTATHIONE
     Indication: PROPHYLAXIS
     Dosage: 1200 MG, QD
     Route: 042
     Dates: start: 20160311, end: 20160318
  102. SCOPOLAMINE HYDROBROMIDE. [Concomitant]
     Active Substance: SCOPOLAMINE HYDROBROMIDE
     Indication: GASTROINTESTINAL DISORDER
     Dosage: 300 UG, SOS
     Route: 030
     Dates: start: 20160311, end: 20160311
  103. BERBERINE HYDROCHLORIDE [Concomitant]
     Active Substance: BERBERINE
     Indication: DIARRHOEA
     Dosage: 300 MG, TID
     Route: 048
     Dates: start: 20160314, end: 20160316
  104. BASILIXIMAB [Suspect]
     Active Substance: BASILIXIMAB
     Indication: PRODUCT USED FOR UNKNOWN INDICATION
     Dosage: 20 MG, QD
     Route: 041
     Dates: start: 20160311, end: 20160311
  105. SODIUM CHLORIDE. [Concomitant]
     Active Substance: SODIUM CHLORIDE
     Dosage: 100 ML, SOS
     Route: 042
     Dates: start: 20160311, end: 20160311
  106. ELECTROLYTES WITH CARBOHYDRATES [Concomitant]
     Dosage: 500 ML, QD
     Route: 042
     Dates: start: 20160311, end: 20160318
  107. CEFOTIAM HYDROCHLORIDE [Concomitant]
     Active Substance: CEFOTIAM HYDROCHLORIDE
     Indication: INFECTION PROPHYLAXIS
     Dosage: 2000 MG, SOS
     Route: 042
     Dates: start: 20160313, end: 20160313
  108. CETIRIZINE HYDROCHLORIDE. [Concomitant]
     Active Substance: CETIRIZINE HYDROCHLORIDE
     Indication: HYPERSENSITIVITY
     Dosage: 10 MG, SOS
     Route: 048
     Dates: start: 20160325, end: 20160325
  109. DOPAMINE HYDROCHLORIDE. [Concomitant]
     Active Substance: DOPAMINE HYDROCHLORIDE
     Dosage: 10 MG, SOS
     Route: 042
     Dates: start: 20160321, end: 20160321
  110. DOPAMINE HYDROCHLORIDE. [Concomitant]
     Active Substance: DOPAMINE HYDROCHLORIDE
     Dosage: 10 MG, SOS
     Route: 042
     Dates: start: 20160325, end: 20160325
  111. ESOMEPRAZOLE MAGNESIUM. [Concomitant]
     Active Substance: ESOMEPRAZOLE MAGNESIUM
     Dosage: 40 MG, BID
     Route: 042
     Dates: start: 20160313, end: 20160325
  112. FUROSEMIDE. [Concomitant]
     Active Substance: FUROSEMIDE
     Dosage: 160 MG, SOS
     Route: 042
     Dates: start: 20160316, end: 20160316
  113. FUROSEMIDE. [Concomitant]
     Active Substance: FUROSEMIDE
     Dosage: 80 MG, SOS
     Route: 042
     Dates: start: 20160322, end: 20160322
  114. FUROSEMIDE. [Concomitant]
     Active Substance: FUROSEMIDE
     Dosage: 40 MG, SOS
     Route: 042
     Dates: start: 20160324, end: 20160324
  115. FUROSEMIDE. [Concomitant]
     Active Substance: FUROSEMIDE
     Dosage: 80 MG, SOS
     Route: 042
     Dates: start: 20160325, end: 20160325
  116. FUROSEMIDE. [Concomitant]
     Active Substance: FUROSEMIDE
     Dosage: 160 MG, SOS
     Route: 042
     Dates: start: 20160326, end: 20160326
  117. HUMAN ALBUMIN [Concomitant]
     Active Substance: ALBUMIN HUMAN
     Indication: PRODUCT USED FOR UNKNOWN INDICATION
     Dosage: 10 G, SOS
     Route: 042
     Dates: start: 20160311, end: 20160311
  118. HUMAN ALBUMIN [Concomitant]
     Active Substance: ALBUMIN HUMAN
     Dosage: 10 G, SOS
     Route: 042
     Dates: start: 20160312, end: 20160312
  119. LIVARACINE [Concomitant]
     Indication: COAGULOPATHY
     Dosage: 2500 IU, SOS
     Route: 061
     Dates: start: 20160401, end: 20160401
  120. MAGNESIUM ISOGLYCYRRHIZINATE [Concomitant]
     Active Substance: MAGNESIUM ISOGLYCYRRHIZINATE
     Dosage: 20 ML, SOS
     Route: 042
     Dates: start: 20160318, end: 20160318
  121. METHYLPREDNISOLONE. [Concomitant]
     Active Substance: METHYLPREDNISOLONE
     Indication: HYPERSENSITIVITY
     Dosage: 40 MG, SOS
     Route: 042
     Dates: start: 20160318, end: 20160318
  122. NITRENDIPINE [Concomitant]
     Active Substance: NITRENDIPINE
     Indication: HYPERTENSION
     Dosage: 10 MG, SOS
     Route: 048
     Dates: start: 20160313, end: 20160313
  123. OMEPRAZOLE SODIUM [Concomitant]
     Active Substance: OMEPRAZOLE SODIUM
     Indication: GASTRITIS PROPHYLAXIS
     Dosage: 40 MG, BID
     Route: 042
     Dates: start: 20160311, end: 20160313
  124. ADALAT [Concomitant]
     Active Substance: NIFEDIPINE
     Dosage: 30 MG, SOS
     Route: 042
     Dates: start: 20160315, end: 20160315
  125. ADALAT [Concomitant]
     Active Substance: NIFEDIPINE
     Dosage: 30 MG, SOS
     Route: 042
     Dates: start: 20160313, end: 20160313
  126. HAEMOCOAGULASE [Concomitant]
     Indication: HAEMOSTASIS
     Dosage: 2 IU, SOS
     Route: 042
     Dates: start: 20160312, end: 20160312
  127. ALOSTIN//ALPROSTADIL [Concomitant]
     Indication: PERIPHERAL VASCULAR DISORDER
     Dosage: 1 DF, UNK
     Route: 042
     Dates: start: 20160311, end: 20160311
  128. ALOSTIN//ALPROSTADIL [Concomitant]
     Dosage: 10 UG, QD
     Route: 042
     Dates: start: 20160317, end: 20160317

REACTIONS (8)
  - Haemoglobin decreased [Unknown]
  - Coagulopathy [Recovering/Resolving]
  - Lymphocyte count decreased [Unknown]
  - Blood albumin decreased [Unknown]
  - Red blood cells urine positive [Recovering/Resolving]
  - White blood cell count increased [Unknown]
  - Blood glucose increased [Unknown]
  - Neutrophil count increased [Unknown]

NARRATIVE: CASE EVENT DATE: 20160313
